FAERS Safety Report 25058501 (Version 1)
Quarter: 2025Q1

REPORT INFORMATION
  Report Type: Spontaneous
  Country: PL (occurrence: PL)
  Receive Date: 20250310
  Receipt Date: 20250310
  Transmission Date: 20250408
  Serious: Yes (Other)
  Sender: PFIZER
  Company Number: None

PATIENT
  Age: 64 Year
  Sex: Male
  Weight: 95 kg

DRUGS (1)
  1. AXITINIB [Suspect]
     Active Substance: AXITINIB
     Indication: Renal cancer
     Dosage: 5 MG, 2X/DAY
     Route: 042
     Dates: start: 20210128, end: 20210225

REACTIONS (2)
  - Hepatic failure [Unknown]
  - Blood bilirubin increased [Unknown]

NARRATIVE: CASE EVENT DATE: 20210225
